FAERS Safety Report 20301697 (Version 2)
Quarter: 2022Q1

REPORT INFORMATION
  Report Type: Report from Study
  Country: US (occurrence: US)
  Receive Date: 20220105
  Receipt Date: 20220109
  Transmission Date: 20220423
  Serious: Yes (Death, Life-Threatening, Hospitalization)
  Sender: FDA-Public Use
  Company Number: US-SERVIER-S21014557

PATIENT

DRUGS (11)
  1. PEGASPARGASE [Suspect]
     Active Substance: PEGASPARGASE
     Indication: B-cell type acute leukaemia
     Dosage: 3975 IU
     Route: 042
     Dates: start: 20210713
  2. PEGASPARGASE [Suspect]
     Active Substance: PEGASPARGASE
     Dosage: 3922.5 IU
     Route: 042
     Dates: start: 20210908
  3. PEGASPARGASE [Suspect]
     Active Substance: PEGASPARGASE
     Dosage: 3922.5 IU
     Route: 042
     Dates: start: 20211013, end: 20211214
  4. INOTUZUMAB OZOGAMICIN [Suspect]
     Active Substance: INOTUZUMAB OZOGAMICIN
     Indication: B-cell type acute leukaemia
     Dosage: UNK
     Route: 065
     Dates: start: 20210907, end: 20211208
  5. METHOTREXATE SODIUM [Suspect]
     Active Substance: METHOTREXATE SODIUM
     Indication: B-cell type acute leukaemia
     Dosage: 15 MG
     Route: 042
     Dates: start: 202107, end: 20211124
  6. CYTARABINE [Suspect]
     Active Substance: CYTARABINE
     Indication: B-cell type acute leukaemia
     Dosage: 70 MG ON DAY 1 AND 40 MG ON DAYS 4, 11, 15 DURING INDUCTION
     Route: 037
     Dates: start: 202107, end: 20211214
  7. CYTARABINE [Suspect]
     Active Substance: CYTARABINE
     Dosage: (118 MG ON DAYS 1-4, 8-11, 29-32, 36-39 DURING CONSOLIDATION
     Route: 042
     Dates: start: 202107, end: 20211214
  8. VINCRISTINE SULFATE [Suspect]
     Active Substance: VINCRISTINE SULFATE
     Indication: B-cell type acute leukaemia
     Dosage: 2 MG ON DAYS 1, 8,15,22 DURING INDUCTION AND 2 MG ON DAYS 15, 43, 50 DURING CONSOLIDATION
     Route: 042
     Dates: start: 202107, end: 20211214
  9. DAUNORUBICIN HYDROCHLORIDE [Suspect]
     Active Substance: DAUNORUBICIN HYDROCHLORIDE
     Indication: B-cell type acute leukaemia
     Dosage: 40 MG, 4 TIMES
     Route: 042
     Dates: start: 202107, end: 20211214
  10. CYCLOPHOSPHAMIDE [Suspect]
     Active Substance: CYCLOPHOSPHAMIDE
     Indication: B-cell type acute leukaemia
     Dosage: 1570 MG, TWICE
     Route: 042
     Dates: start: 202107, end: 20211214
  11. MERCAPTOPURINE [Suspect]
     Active Substance: MERCAPTOPURINE
     Indication: B-cell type acute leukaemia
     Dosage: 650 MG/WEEK
     Route: 042
     Dates: start: 202107, end: 20211214

REACTIONS (2)
  - Disseminated intravascular coagulation [Fatal]
  - Second primary malignancy [Not Recovered/Not Resolved]

NARRATIVE: CASE EVENT DATE: 20211213
